FAERS Safety Report 5240576-8 (Version None)
Quarter: 2007Q1

REPORT INFORMATION
  Report Type: 
  Country: None (occurrence: None)
  Receive Date: 20061208
  Receipt Date: 20050927
  Transmission Date: 20070707
  Serious: Yes (Other)
  Sender: FDA-Public Use
  Company Number: 2005UW13891

PATIENT
  Age: 76 Year
  Sex: Female
  Weight: 62.142 kg

DRUGS (4)
  1. CRESTOR [Suspect]
     Indication: BLOOD CHOLESTEROL INCREASED
     Dosage: 5 MG DAILY PO
     Route: 048
     Dates: start: 20050817, end: 20050927
  2. SYNTHROID [Concomitant]
  3. NORVASC [Concomitant]
  4. KLONOPIN [Concomitant]

REACTIONS (3)
  - MUSCLE SPASMS [None]
  - NAUSEA [None]
  - NIGHT SWEATS [None]
